FAERS Safety Report 24190064 (Version 1)
Quarter: 2024Q3

REPORT INFORMATION
  Report Type: Spontaneous
  Country: US (occurrence: US)
  Receive Date: 20240808
  Receipt Date: 20240808
  Transmission Date: 20241017
  Serious: Yes (Death, Hospitalization, Other)
  Sender: BAYER
  Company Number: US-BAYER-2024A113774

PATIENT
  Age: 84 Year
  Sex: Female

DRUGS (4)
  1. BAYER LOW DOSE [Suspect]
     Active Substance: ASPIRIN
     Indication: Angina pectoris
     Dosage: 1 A DAY
     Dates: start: 20030108, end: 20190110
  2. NITROGLYN [Concomitant]
     Active Substance: NITROGLYCERIN
     Indication: Coagulation time abnormal
  3. AMLODIPINE BESYLATE [Concomitant]
     Active Substance: AMLODIPINE BESYLATE
     Indication: Nervous system disorder
  4. SODIUM BENZOATE [Concomitant]
     Active Substance: SODIUM BENZOATE
     Dates: start: 20170112

REACTIONS (12)
  - Angina pectoris [Fatal]
  - Dyspnoea [Fatal]
  - Dehydration [Fatal]
  - Dementia with Lewy bodies [None]
  - Cardiac disorder [None]
  - Mitral valve incompetence [None]
  - Cholecystectomy [None]
  - Trigeminal neuralgia [None]
  - Nail discolouration [None]
  - Periodontitis [None]
  - Gastrooesophageal reflux disease [None]
  - Anxiety disorder [None]

NARRATIVE: CASE EVENT DATE: 20210915
